FAERS Safety Report 8201879-8 (Version None)
Quarter: 2012Q1

REPORT INFORMATION
  Report Type: 
  Country: None (occurrence: None)
  Receive Date: 20120312
  Receipt Date: 20120301
  Transmission Date: 20120608
  Serious: Yes (Hospitalization)
  Sender: FDA-Public Use
  Company Number: DE-VERTEX PHARMACEUTICALS INC.-AE-2011-004322

PATIENT
  Sex: Female
  Weight: 42 kg

DRUGS (16)
  1. SODIUM CHLORIDE 0.9% [Concomitant]
     Indication: CYSTIC FIBROSIS LUNG
     Dates: start: 20091125
  2. VITAMIN A [Concomitant]
     Indication: MEDICAL DIET
     Route: 048
     Dates: start: 20110907
  3. SEREVENT [Concomitant]
     Indication: CYSTIC FIBROSIS LUNG
     Dates: start: 20020608
  4. CREON [Concomitant]
     Indication: CYSTIC FIBROSIS PANCREATIC
     Route: 048
     Dates: start: 20000101
  5. PULMOZYME [Concomitant]
     Indication: CYSTIC FIBROSIS LUNG
     Dates: start: 20000101
  6. ACETYLCYSTEINE [Concomitant]
     Indication: CYSTIC FIBROSIS LUNG
     Dates: start: 20000101
  7. COLISTIN SULFATE [Concomitant]
     Indication: PSEUDOMONAS INFECTION
     Dates: start: 20111114
  8. FOSFOMYCIN [Concomitant]
     Dates: start: 20111118
  9. IVACAFTOR [Suspect]
     Route: 048
     Dates: start: 20101110
  10. PIPERACILLIN AND TAZOBACTAM [Concomitant]
     Dates: start: 20111118
  11. MUCOCLEAR [Concomitant]
     Indication: CYSTIC FIBROSIS LUNG
     Dates: start: 20110907
  12. SELENASE [Concomitant]
     Indication: CYSTIC FIBROSIS PANCREATIC
     Route: 048
     Dates: start: 20000101
  13. IVACAFTOR [Suspect]
     Indication: CYSTIC FIBROSIS
     Route: 048
     Dates: start: 20091209, end: 20101109
  14. AZITHROMYCIN [Concomitant]
     Indication: PSEUDOMONAS INFECTION
     Route: 048
     Dates: start: 20081126
  15. VIGANTOTELLEN [Concomitant]
     Indication: MEDICAL DIET
     Route: 048
     Dates: start: 20110907
  16. OPTOVIT [Concomitant]
     Indication: MEDICAL DIET
     Route: 048
     Dates: start: 20110907

REACTIONS (2)
  - PNEUMOTHORAX [None]
  - SEPSIS [None]
